FAERS Safety Report 4916551-7 (Version None)
Quarter: 2006Q1

REPORT INFORMATION
  Report Type: 
  Country: None (occurrence: None)
  Receive Date: 20060220
  Receipt Date: 20060210
  Transmission Date: 20060701
  Serious: Yes (Other)
  Sender: FDA-Public Use
  Company Number: 2006UW02548

PATIENT

DRUGS (2)
  1. NEXIUM [Suspect]
     Route: 048
  2. LIPITOR [Interacting]

REACTIONS (6)
  - ATRIOVENTRICULAR BLOCK [None]
  - CHEST PAIN [None]
  - DRUG INTERACTION [None]
  - DYSPNOEA [None]
  - FATIGUE [None]
  - SYNCOPE [None]
